FAERS Safety Report 8970921 (Version 1)
Quarter: 2012Q4

REPORT INFORMATION
  Report Type: 
  Country: FR (occurrence: FR)
  Receive Date: 20121217
  Receipt Date: 20121217
  Transmission Date: 20130627
  Serious: Yes (Life-Threatening)
  Sender: FDA-Public Use
  Company Number: FR-ASTRAZENECA-2012SE93591

PATIENT
  Age: 22416 Day
  Sex: Male

DRUGS (7)
  1. DIPRIVAN [Suspect]
     Indication: INDUCTION OF ANAESTHESIA
     Dosage: Once/Single administration
     Route: 042
     Dates: start: 20120125, end: 20120125
  2. CELOCURINE [Suspect]
     Indication: INDUCTION OF ANAESTHESIA
     Dosage: Once/Single administration
     Route: 042
     Dates: start: 20120125, end: 20120125
  3. ULTIVA [Suspect]
     Indication: INDUCTION OF ANAESTHESIA
     Route: 042
     Dates: start: 20120125, end: 20120125
  4. INEXIUM [Concomitant]
     Route: 048
  5. EPITOMAX [Concomitant]
  6. LAROXYL [Concomitant]
  7. LAMICTAL [Concomitant]

REACTIONS (1)
  - Anaphylactic shock [Recovered/Resolved]
